FAERS Safety Report 9649448 (Version 2)
Quarter: 2014Q1

REPORT INFORMATION
  Report Type: Spontaneous
  Country: US (occurrence: None)
  Receive Date: 20131018
  Receipt Date: 20140122
  Transmission Date: 20141002
  Serious: No
  Sender: FDA-Public Use
  Company Number: AEGR000095

PATIENT
  Age: 61 Year
  Sex: Female
  Weight: 88.4 kg

DRUGS (9)
  1. JUXTAPID(LOMITAPID)CAPSULE [Suspect]
     Indication: TYPE IIA HYPERLIPIDAEMIA
     Route: 048
     Dates: start: 20130614, end: 2013
  2. ZETIA(EZETIMIBE) [Concomitant]
  3. LIPITOR(ATORVASTATIN CALCIUM) [Concomitant]
  4. FENOFIBRATE(FENOFIBRATE) [Concomitant]
  5. PLAVIX(CLOPIDOGREL BISULFATE) [Concomitant]
  6. LORTAB(LORATADINE) [Concomitant]
  7. VITAMIN B12 (HYDROXOCOBALAMIN) [Concomitant]
  8. LEVOTHYROZINE(LEVOTHYROXINE SODIUM) [Concomitant]
  9. ASPIRIN(ACETYLSALICYLIC ACID) [Concomitant]

REACTIONS (2)
  - Diarrhoea [None]
  - Vomiting [None]
